FAERS Safety Report 17198457 (Version 1)
Quarter: 2019Q4

REPORT INFORMATION
  Report Type: Spontaneous
  Country: FR (occurrence: FR)
  Receive Date: 20191225
  Receipt Date: 20191225
  Transmission Date: 20200122
  Serious: Yes (Hospitalization, Other)
  Sender: FDA-Public Use
  Company Number: FR-AUROBINDO-AUR-APL-2019-106907

PATIENT
  Age: 42 Year
  Sex: Female
  Weight: 63 kg

DRUGS (6)
  1. SPIRAMYCINE [Suspect]
     Active Substance: SPIRAMYCIN
     Indication: INFECTION
     Dosage: 2 DOSAGE FORM, ONCE A DAY
     Route: 048
     Dates: start: 20190920
  2. PARACETAMOL [Suspect]
     Active Substance: ACETAMINOPHEN
     Indication: PAIN
     Dosage: 4 GRAM, ONCE A DAY
     Route: 042
     Dates: start: 20191023
  3. LOVENOX [Suspect]
     Active Substance: ENOXAPARIN SODIUM
     Indication: CARDIOVASCULAR EVENT PROPHYLAXIS
     Dosage: 4000 UI
     Route: 058
     Dates: start: 20191024
  4. CIPROFLOXACIN. [Suspect]
     Active Substance: CIPROFLOXACIN
     Indication: PYELONEPHRITIS ACUTE
     Dosage: 400 MILLIGRAM, ONCE A DAY
     Route: 042
     Dates: start: 20191023
  5. CEFTRIAXONE. [Suspect]
     Active Substance: CEFTRIAXONE
     Indication: PYELONEPHRITIS ACUTE
     Dosage: 1 GRAM, ONCE A DAY
     Route: 042
     Dates: start: 20191023
  6. METOCLOPRAMIDE. [Suspect]
     Active Substance: METOCLOPRAMIDE
     Indication: VOMITING
     Dosage: 30 MILLIGRAM, ONCE A DAY, IF NECESSARY
     Route: 042
     Dates: start: 20191024

REACTIONS (2)
  - Liver function test abnormal [Recovering/Resolving]
  - Cholestasis [Recovering/Resolving]

NARRATIVE: CASE EVENT DATE: 20191028
